FAERS Safety Report 12577446 (Version 3)
Quarter: 2016Q3

REPORT INFORMATION
  Report Type: Report from Study
  Country: US (occurrence: US)
  Receive Date: 20160720
  Receipt Date: 20160817
  Transmission Date: 20161109
  Serious: Yes (Hospitalization)
  Sender: FDA-Public Use
  Company Number: US-ACTELION-A-NJ2016-130247

PATIENT
  Age: 65 Year
  Sex: Male

DRUGS (4)
  1. TYVASO [Concomitant]
     Active Substance: TREPROSTINIL
  2. OPSUMIT [Suspect]
     Active Substance: MACITENTAN
     Indication: PULMONARY ARTERIAL HYPERTENSION
     Dosage: 10 MG, QD
     Route: 048
     Dates: start: 20150929, end: 20160630
  3. REVATIO [Concomitant]
     Active Substance: SILDENAFIL CITRATE
  4. ESBRIET [Concomitant]
     Active Substance: PIRFENIDONE

REACTIONS (7)
  - Epistaxis [Unknown]
  - Hypotension [Unknown]
  - Lung disorder [Recovered/Resolved]
  - Fall [Unknown]
  - Lung transplant [Recovered/Resolved]
  - Contusion [Unknown]
  - Syncope [Unknown]
